FAERS Safety Report 8495813-3 (Version None)
Quarter: 2012Q3

REPORT INFORMATION
  Report Type: 
  Country: None (occurrence: None)
  Receive Date: 20120709
  Receipt Date: 20120702
  Transmission Date: 20120928
  Serious: Yes (Other)
  Sender: FDA-Public Use
  Company Number: PHEH2012US013365

PATIENT
  Sex: Male
  Weight: 85.714 kg

DRUGS (1)
  1. GILENYA [Suspect]
     Indication: MULTIPLE SCLEROSIS
     Dosage: 0.5 MG, QD
     Route: 048
     Dates: start: 20120619

REACTIONS (3)
  - GAIT DISTURBANCE [None]
  - FALL [None]
  - MUSCULAR WEAKNESS [None]
